FAERS Safety Report 12431630 (Version 3)
Quarter: 2016Q3

REPORT INFORMATION
  Report Type: Spontaneous
  Country: RU (occurrence: RU)
  Receive Date: 20160603
  Receipt Date: 20160715
  Transmission Date: 20161109
  Serious: Yes (Death, Other)
  Sender: FDA-Public Use
  Company Number: RU-009507513-1606RUS000524

PATIENT
  Age: 52 Year
  Sex: Female

DRUGS (2)
  1. LIDOCAINE. [Suspect]
     Active Substance: LIDOCAINE
     Indication: PERIARTHRITIS
     Dosage: TOTAL DAILY DOSE 10 ML
     Route: 030
     Dates: start: 20160516, end: 20160516
  2. DIPROSPAN [Suspect]
     Active Substance: BETAMETHASONE DIPROPIONATE\BETAMETHASONE SODIUM PHOSPHATE
     Indication: PERIARTHRITIS
     Dosage: TOTAL DAILY DOSE 1 ML
     Route: 030
     Dates: start: 20160416, end: 20160416

REACTIONS (4)
  - Loss of consciousness [Fatal]
  - Laryngeal oedema [Fatal]
  - Seizure [Fatal]
  - Death [Fatal]

NARRATIVE: CASE EVENT DATE: 20160416
